FAERS Safety Report 9690440 (Version 1)
Quarter: 2013Q4

REPORT INFORMATION
  Report Type: Spontaneous
  Country: US (occurrence: US)
  Receive Date: 20131115
  Receipt Date: 20131115
  Transmission Date: 20140711
  Serious: Yes (Hospitalization, Other)
  Sender: FDA-Public Use
  Company Number: US-AMGEN-USASP2013080662

PATIENT
  Age: 67 Year
  Sex: Female

DRUGS (1)
  1. ENBREL [Suspect]
     Indication: RHEUMATOID ARTHRITIS
     Dosage: UNK
     Route: 065
     Dates: start: 1998, end: 1999

REACTIONS (6)
  - Ankle arthroplasty [Recovered/Resolved]
  - Road traffic accident [Recovered/Resolved]
  - Ventricular septal defect [Not Recovered/Not Resolved]
  - Intervertebral disc protrusion [Recovered/Resolved]
  - Transient ischaemic attack [Recovered/Resolved]
  - Arthralgia [Not Recovered/Not Resolved]
